FAERS Safety Report 5750350-1 (Version None)
Quarter: 2008Q2

REPORT INFORMATION
  Report Type: 
  Country: None (occurrence: None)
  Receive Date: 20080528
  Receipt Date: 20080512
  Transmission Date: 20081010
  Serious: Yes (Hospitalization)
  Sender: FDA-Public Use
  Company Number: US-BAYER-200817342NA

PATIENT
  Sex: Female

DRUGS (3)
  1. BETASERON [Suspect]
     Indication: UNEVALUABLE EVENT
     Route: 058
  2. PNEUMONIA VACCINE [Suspect]
  3. AVONEX [Concomitant]

REACTIONS (2)
  - INFECTION [None]
  - MALAISE [None]
